FAERS Safety Report 8986243 (Version 1)
Quarter: 2012Q4

REPORT INFORMATION
  Report Type: Spontaneous
  Country: US (occurrence: None)
  Receive Date: 20121219
  Receipt Date: 20121219
  Transmission Date: 20130627
  Serious: Yes (Hospitalization)
  Sender: FDA-Public Use
  Company Number: None

PATIENT
  Age: 83 Year
  Sex: Male
  Weight: 71.8 kg

DRUGS (1)
  1. MORPHINE [Suspect]
     Indication: PAIN
     Route: 042
     Dates: start: 20121010, end: 20121011

REACTIONS (1)
  - Mental status changes [None]
